FAERS Safety Report 4677864-X (Version None)
Quarter: 2005Q2

REPORT INFORMATION
  Report Type: 
  Country: None (occurrence: None)
  Receive Date: 20050531
  Receipt Date: 20021218
  Transmission Date: 20051028
  Serious: Yes (Other)
  Sender: FDA-Public Use
  Company Number: US-GLAXOSMITHKLINE-A0389788A

PATIENT
  Age: 81 Year
  Sex: Female

DRUGS (4)
  1. WELLBUTRIN [Suspect]
     Indication: ILL-DEFINED DISORDER
     Dosage: 100MG TWICE PER DAY
     Route: 048
     Dates: start: 20021205
  2. PAXIL [Concomitant]
     Dosage: 60MG PER DAY
     Dates: start: 20020801
  3. NEXIUM [Concomitant]
     Dates: start: 20020801
  4. PREMARIN [Concomitant]

REACTIONS (2)
  - BLISTER [None]
  - TOXIC EPIDERMAL NECROLYSIS [None]
